FAERS Safety Report 6912765-5 (Version None)
Quarter: 2010Q3

REPORT INFORMATION
  Report Type: 
  Country: None (occurrence: None)
  Receive Date: 20100806
  Receipt Date: 20081106
  Transmission Date: 20110219
  Serious: No
  Sender: FDA-Public Use
  Company Number: US-PFIZER INC-2008094033

PATIENT
  Sex: Male

DRUGS (2)
  1. DILANTIN [Suspect]
  2. SUCRALFATE [Suspect]

REACTIONS (1)
  - DRUG LEVEL ABOVE THERAPEUTIC [None]
